FAERS Safety Report 6261753-3 (Version None)
Quarter: 2009Q3

REPORT INFORMATION
  Report Type: 
  Country: None (occurrence: None)
  Receive Date: 20090707
  Receipt Date: 20090707
  Transmission Date: 20100115
  Serious: Yes (Other)
  Sender: FDA-Public Use
  Company Number: None

PATIENT
  Age: 54 Year
  Sex: Female
  Weight: 80.2867 kg

DRUGS (1)
  1. LEVAQUIN [Suspect]
     Indication: COLITIS
     Dosage: 500MG TWICE DAILY PO
     Route: 048
     Dates: start: 20090606, end: 20090620

REACTIONS (1)
  - TENDON PAIN [None]
